FAERS Safety Report 6397893-8 (Version None)
Quarter: 2009Q4

REPORT INFORMATION
  Report Type: 
  Country: None (occurrence: None)
  Receive Date: 20091013
  Receipt Date: 20091005
  Transmission Date: 20100525
  Serious: No
  Sender: FDA-Public Use
  Company Number: US-B.I. PHARMACEUTICALS,INC./RIDGEFIELD-2009-BP-11543BP

PATIENT
  Age: 69 Year
  Sex: Female

DRUGS (6)
  1. AGGRENOX [Suspect]
     Indication: TRANSIENT ISCHAEMIC ATTACK
     Route: 048
     Dates: start: 20090927, end: 20091005
  2. ZOCOR [Concomitant]
     Indication: BLOOD CHOLESTEROL INCREASED
  3. BENICAR [Concomitant]
     Indication: HYPERTENSION
  4. HUMULIN 70/30 [Concomitant]
     Indication: DIABETES MELLITUS
  5. HYDROCHLOROTHIAZIDE [Concomitant]
     Indication: HYPERTENSION
  6. LASIX [Concomitant]
     Indication: HYPERTENSION

REACTIONS (4)
  - ASTHENIA [None]
  - DIARRHOEA [None]
  - HEADACHE [None]
  - NAUSEA [None]
